FAERS Safety Report 14971345 (Version 7)
Quarter: 2018Q4

REPORT INFORMATION
  Report Type: Spontaneous
  Country: US (occurrence: US)
  Receive Date: 20180604
  Receipt Date: 20181126
  Transmission Date: 20190204
  Serious: Yes (Hospitalization)
  Sender: FDA-Public Use
  Company Number: US-ACTELION-A-NJ2018-168360

PATIENT
  Age: 9 Month
  Sex: Male
  Weight: 9.7 kg

DRUGS (23)
  1. TRACLEER [Suspect]
     Active Substance: BOSENTAN
     Dosage: 17.2 MG, BID
     Route: 048
     Dates: start: 20171206
  2. VASOPRESSIN. [Concomitant]
     Active Substance: VASOPRESSIN
     Dosage: TITRATED TO EFFECT
     Dates: start: 20170919, end: 20170922
  3. LANSOPRAZOLE. [Concomitant]
     Active Substance: LANSOPRAZOLE
     Dosage: 0.75 UNK, UNK
  4. URSODIOL. [Concomitant]
     Active Substance: URSODIOL
     Dosage: 1.4 ML, UNK
  5. METHADONE [Concomitant]
     Active Substance: METHADONE HYDROCHLORIDE
     Dosage: UNK
     Dates: start: 20180310, end: 20180414
  6. DEXMEDETOMIDINE. [Concomitant]
     Active Substance: DEXMEDETOMIDINE
     Dosage: TITRATED TO EFFECT
     Route: 042
     Dates: start: 20170919, end: 20170919
  7. TPN [Concomitant]
     Active Substance: AMINO ACIDS\DEXTROSE\ELECTROLYTES NOS\SOYBEAN OIL
     Dosage: UNK
     Dates: start: 20170919, end: 20171025
  8. TRACLEER [Suspect]
     Active Substance: BOSENTAN
     Dosage: 32 MG, BID
     Route: 048
  9. CHLOROTHIAZIDE. [Concomitant]
     Active Substance: CHLOROTHIAZIDE
     Dosage: 2 ML, UNK
  10. ROCURONIUM [Concomitant]
     Active Substance: ROCURONIUM BROMIDE
     Indication: PARALYTIC DISABILITY
     Dosage: TITRATED TO EFFECT
     Route: 042
     Dates: start: 20170919, end: 20171009
  11. PENTOBARBITAL. [Concomitant]
     Active Substance: PENTOBARBITAL
     Indication: SEDATION
     Dosage: UNK
     Dates: end: 20171003
  12. TRACLEER [Suspect]
     Active Substance: BOSENTAN
     Indication: PULMONARY ARTERIAL HYPERTENSION
     Dosage: 6 MG, BID
     Route: 048
     Dates: start: 20170919, end: 20171007
  13. TRACLEER [Suspect]
     Active Substance: BOSENTAN
     Dosage: 9 MG, BID
     Route: 048
     Dates: start: 20171211
  14. REVATIO [Concomitant]
     Active Substance: SILDENAFIL CITRATE
     Dosage: 1.68 MG, Q6H
     Route: 042
     Dates: start: 20170919
  15. GENTAMICIN. [Concomitant]
     Active Substance: GENTAMICIN
  16. TRACLEER [Suspect]
     Active Substance: BOSENTAN
     Dosage: 12 MG, BID
     Route: 048
     Dates: start: 20171007
  17. REVATIO [Concomitant]
     Active Substance: SILDENAFIL CITRATE
     Dosage: 10 MG, Q6HRS
  18. MIDAZOLAM [Concomitant]
     Active Substance: MIDAZOLAM HYDROCHLORIDE
     Indication: SEDATION
     Dosage: TITRATION TO EFFECT
     Route: 042
     Dates: start: 20170919, end: 20171014
  19. FUROSEMIDE. [Concomitant]
     Active Substance: FUROSEMIDE
     Dosage: 1 MG/KG, Q8H
     Route: 042
     Dates: start: 20170928
  20. CEFTAZIDIME. [Concomitant]
     Active Substance: CEFTAZIDIME
     Dosage: 340 MG, Q8H
     Route: 042
     Dates: start: 20170930, end: 20171002
  21. MORPHINE [Concomitant]
     Active Substance: MORPHINE
     Indication: SEDATION
     Dosage: TITRATION TO EFFECT
     Route: 042
     Dates: start: 20170919, end: 20171014
  22. VANCOMYCIN [Concomitant]
     Active Substance: VANCOMYCIN
     Dosage: 100 MG, Q8H
     Route: 042
     Dates: start: 20170919, end: 20170921
  23. CEFEPIME [Concomitant]
     Active Substance: CEFEPIME HYDROCHLORIDE
     Dosage: 1.68 MG, Q8H
     Route: 042
     Dates: start: 20170919, end: 20170919

REACTIONS (9)
  - Hospitalisation [Unknown]
  - Aspartate aminotransferase increased [Recovered/Resolved]
  - Oxygen saturation increased [Unknown]
  - Liver function test increased [Recovered/Resolved]
  - Blood alkaline phosphatase increased [Recovered/Resolved]
  - Apnoea [Unknown]
  - Alanine aminotransferase increased [Recovered/Resolved]
  - Pulmonary hypertension [Recovering/Resolving]
  - Tracheostomy [Unknown]

NARRATIVE: CASE EVENT DATE: 20180219
